FAERS Safety Report 16253201 (Version 2)
Quarter: 2019Q2

REPORT INFORMATION
  Report Type: Spontaneous
  Country: US (occurrence: US)
  Receive Date: 20190429
  Receipt Date: 20190515
  Transmission Date: 20190711
  Serious: No
  Sender: FDA-Public Use
  Company Number: US-SA-2019SA115818

PATIENT
  Age: 48 Year
  Sex: Female

DRUGS (5)
  1. LATISSE [Concomitant]
     Active Substance: BIMATOPROST
     Dosage: UNK UNK, QD
  2. VOLTAREN [DICLOFENAC DIETHYLAMINE] [Concomitant]
     Active Substance: DICLOFENAC DIETHYLAMINE
     Dosage: UNK UNK, PRN
     Route: 061
  3. DUPIXENT [Suspect]
     Active Substance: DUPILUMAB
     Indication: DERMATITIS ATOPIC
     Dosage: 300 MG, QOW
     Route: 058
     Dates: start: 201808
  4. FLUTICASONE [FLUTICASONE PROPIONATE] [Concomitant]
     Dosage: 1 DF, QD
  5. YASMIN [Concomitant]
     Active Substance: DROSPIRENONE\ETHINYL ESTRADIOL
     Dosage: 1 DF, QD

REACTIONS (7)
  - Injection site inflammation [Unknown]
  - Dermatitis [Unknown]
  - Alopecia [Unknown]
  - Injection site erythema [Unknown]
  - Arthropathy [Recovered/Resolved]
  - Dry eye [Unknown]
  - Injection site urticaria [Unknown]

NARRATIVE: CASE EVENT DATE: 201904
